FAERS Safety Report 25210239 (Version 1)
Quarter: 2025Q2

REPORT INFORMATION
  Report Type: Spontaneous
  Country: US (occurrence: US)
  Receive Date: 20250417
  Receipt Date: 20250417
  Transmission Date: 20250717
  Serious: Yes (Death)
  Sender: PACIRA
  Company Number: US-ORG100016242-2025000136

PATIENT
  Sex: Female

DRUGS (2)
  1. EXPAREL [Suspect]
     Active Substance: BUPIVACAINE
     Indication: Face lift
     Route: 050
     Dates: start: 202301, end: 202301
  2. MARCAINE [Suspect]
     Active Substance: BUPIVACAINE HYDROCHLORIDE
     Indication: Face lift
     Route: 050
     Dates: start: 202301, end: 202301

REACTIONS (5)
  - Brain injury [Fatal]
  - Pulse absent [Fatal]
  - Extra dose administered [Fatal]
  - Hypoxia [Fatal]
  - Agitation [Unknown]

NARRATIVE: CASE EVENT DATE: 20230118
